FAERS Safety Report 23944021 (Version 1)
Quarter: 2024Q2

REPORT INFORMATION
  Report Type: Report from Study
  Country: CA (occurrence: CA)
  Receive Date: 20240606
  Receipt Date: 20240606
  Transmission Date: 20240716
  Serious: Yes (Other)
  Sender: FDA-Public Use
  Company Number: CA-002147023-NVSC2021CA102789

PATIENT
  Age: 26 Year
  Sex: Male
  Weight: 11.82 kg

DRUGS (5)
  1. HYRIMOZ [Suspect]
     Active Substance: ADALIMUMAB-ADAZ
     Dosage: 40 MG, QW
     Route: 058
     Dates: start: 20211126
  2. HYRIMOZ [Suspect]
     Active Substance: ADALIMUMAB-ADAZ
     Dosage: 40 MG, Q2W
     Route: 058
     Dates: end: 202307
  3. HYRIMOZ [Suspect]
     Active Substance: ADALIMUMAB-ADAZ
     Indication: Colitis ulcerative
     Dosage: 40 MG
     Route: 058
     Dates: start: 20210430
  4. HYRIMOZ [Suspect]
     Active Substance: ADALIMUMAB-ADAZ
     Dosage: 40 MG
     Route: 058
     Dates: start: 20210519
  5. HYRIMOZ [Suspect]
     Active Substance: ADALIMUMAB-ADAZ
     Dosage: UNK
     Route: 058
     Dates: start: 20210619

REACTIONS (14)
  - Haematochezia [Unknown]
  - Colitis ulcerative [Unknown]
  - Diarrhoea [Unknown]
  - Proctalgia [Not Recovered/Not Resolved]
  - Injection site erythema [Unknown]
  - Injection site pain [Unknown]
  - Product dose omission in error [Unknown]
  - Inappropriate schedule of product administration [Unknown]
  - Drug ineffective [Unknown]
  - Dizziness [Unknown]
  - Fatigue [Unknown]
  - Product dose omission issue [Unknown]
  - Therapy cessation [Unknown]
  - Needle issue [Unknown]

NARRATIVE: CASE EVENT DATE: 20230701
